FAERS Safety Report 23509485 (Version 5)
Quarter: 2025Q1

REPORT INFORMATION
  Report Type: Other
  Country: US (occurrence: US)
  Receive Date: 20240210
  Receipt Date: 20250120
  Transmission Date: 20250409
  Serious: No
  Sender: TRAVERE THERAPEUTICS
  Company Number: US-TRAVERE-2024TVT00071

PATIENT
  Age: 44 Year
  Sex: Male

DRUGS (1)
  1. FILSPARI [Suspect]
     Active Substance: SPARSENTAN
     Indication: IgA nephropathy
     Route: 048
     Dates: start: 20240113

REACTIONS (6)
  - Oropharyngeal pain [Unknown]
  - Ear pain [Unknown]
  - Pain in extremity [Unknown]
  - Gout [Unknown]
  - Blood calcium increased [None]
  - Protein urine present [None]
